FAERS Safety Report 5598828-8 (Version None)
Quarter: 2008Q1

REPORT INFORMATION
  Report Type: 
  Country: None (occurrence: None)
  Receive Date: 20080122
  Receipt Date: 20080114
  Transmission Date: 20080703
  Serious: Yes (Hospitalization)
  Sender: FDA-Public Use
  Company Number: US-ELI_LILLY_AND_COMPANY-US200801002591

PATIENT
  Sex: Female

DRUGS (4)
  1. FORTEO [Suspect]
     Indication: OSTEOPOROSIS
     Dosage: UNK, UNK
     Route: 058
     Dates: start: 20070301, end: 20071201
  2. FORTEO [Suspect]
     Route: 058
  3. ACTONEL [Concomitant]
     Dates: end: 20070101
  4. ACTONEL [Concomitant]
     Dates: start: 20071201

REACTIONS (1)
  - HIP FRACTURE [None]
